FAERS Safety Report 9127020 (Version 2)
Quarter: 2013Q2

REPORT INFORMATION
  Report Type: Spontaneous
  Country: US (occurrence: US)
  Receive Date: 20130228
  Receipt Date: 20130405
  Transmission Date: 20140414
  Serious: Yes (Other)
  Sender: FDA-Public Use
  Company Number: PHEH2013US004688

PATIENT
  Sex: Female

DRUGS (2)
  1. VIVELLE DOT [Suspect]
     Dosage: 0.1 MG, BIW (TWICE A WEEK )
     Route: 062
  2. LEVAQUIN [Concomitant]
     Dosage: UNK UKN, UNK

REACTIONS (4)
  - Asthma [Unknown]
  - Cough [Unknown]
  - Hormone level abnormal [Unknown]
  - Product adhesion issue [Unknown]
